FAERS Safety Report 11934160 (Version 1)
Quarter: 2016Q1

REPORT INFORMATION
  Report Type: Spontaneous
  Country: US (occurrence: None)
  Receive Date: 20160120
  Receipt Date: 20160120
  Transmission Date: 20160526
  Serious: No
  Sender: FDA-Public Use
  Company Number: None

PATIENT
  Age: 64 Year
  Sex: Male

DRUGS (1)
  1. HARVONI [Suspect]
     Active Substance: LEDIPASVIR\SOFOSBUVIR
     Indication: HEPATITIS C
     Dosage: 90-400MG TAB?QD X 12WEEKS?PO
     Route: 048
     Dates: start: 20160104

REACTIONS (5)
  - Aggression [None]
  - Fatigue [None]
  - Anger [None]
  - Mood swings [None]
  - Headache [None]

NARRATIVE: CASE EVENT DATE: 201601
